FAERS Safety Report 4798271-5 (Version None)
Quarter: 2005Q4

REPORT INFORMATION
  Report Type: 
  Country: None (occurrence: None)
  Receive Date: 20051011
  Receipt Date: 20051011
  Transmission Date: 20060501
  Serious: Yes (Life-Threatening, Hospitalization)
  Sender: FDA-Public Use
  Company Number: None

PATIENT
  Age: 62 Year
  Sex: Female
  Weight: 82.5547 kg

DRUGS (17)
  1. DEPODUR [Suspect]
     Indication: KNEE ARTHROPLASTY
     Dosage: 10 MG ONE TIME DOSE EPIDURAL
     Route: 008
     Dates: start: 20051003, end: 20051003
  2. DEPODUR [Suspect]
     Indication: POSTOPERATIVE ANALGESIA
     Dosage: 10 MG ONE TIME DOSE EPIDURAL
     Route: 008
     Dates: start: 20051003, end: 20051003
  3. TARKA [Concomitant]
  4. TOPROL-XL [Concomitant]
  5. TRIAMTERENE AND HYDROCHLOROTHIAZIDE [Concomitant]
  6. TRICOR [Concomitant]
  7. LIPITOR [Concomitant]
  8. ECOTRIN [Concomitant]
  9. PERI-COLACE [Concomitant]
  10. VERSED [Concomitant]
  11. FENTANYL [Concomitant]
  12. ANCEF [Concomitant]
  13. TORADOL [Concomitant]
  14. DEMEROL [Concomitant]
  15. DIPRIVAN [Concomitant]
  16. VANCOMYCIN [Concomitant]
  17. ROBINUL [Concomitant]

REACTIONS (5)
  - POST PROCEDURAL COMPLICATION [None]
  - POST PROCEDURAL NAUSEA [None]
  - POST PROCEDURAL VOMITING [None]
  - RESPIRATORY RATE DECREASED [None]
  - SEDATION [None]
